FAERS Safety Report 19939436 (Version 3)
Quarter: 2022Q1

REPORT INFORMATION
  Report Type: Spontaneous
  Country: LU (occurrence: LU)
  Receive Date: 20211011
  Receipt Date: 20220114
  Transmission Date: 20220423
  Serious: Yes (Disabling, Other)
  Sender: FDA-Public Use
  Company Number: LU-PFM-2021-09887

PATIENT
  Sex: Male

DRUGS (2)
  1. BRAFTOVI [Suspect]
     Active Substance: ENCORAFENIB
     Indication: Colorectal cancer metastatic
     Dosage: UNK
     Route: 048
     Dates: start: 202105, end: 202108
  2. CETUXIMAB [Suspect]
     Active Substance: CETUXIMAB
     Indication: Colorectal cancer metastatic
     Dosage: UNK
     Route: 042
     Dates: start: 202105, end: 202108

REACTIONS (3)
  - Rhabdomyolysis [Unknown]
  - Muscle necrosis [Unknown]
  - Neurological symptom [Unknown]

NARRATIVE: CASE EVENT DATE: 20210801
